FAERS Safety Report 4341555-5 (Version None)
Quarter: 2004Q2

REPORT INFORMATION
  Report Type: 
  Country: None (occurrence: None)
  Receive Date: 20040420
  Receipt Date: 20040414
  Transmission Date: 20050107
  Serious: Yes (Hospitalization)
  Sender: FDA-Public Use
  Company Number: US-JNJFOC-20040300184

PATIENT
  Age: 77 Year
  Sex: Male
  Weight: 74.84 kg

DRUGS (3)
  1. DURAGESIC [Suspect]
     Route: 062
  2. DURAGESIC [Suspect]
     Dosage: M.D.REPORTED 50 UG/HR (FREQUENCY UNSPEC.) STARTED IN HOSPITAL, RESUMED 75 UG/HR APPROX. 3 WEEKS AGO.
     Route: 062
  3. DURAGESIC [Suspect]
     Indication: DRUG USE FOR UNKNOWN INDICATION
     Route: 062

REACTIONS (5)
  - DYSARTHRIA [None]
  - MENTAL STATUS CHANGES [None]
  - OVERDOSE [None]
  - PHARMACEUTICAL PRODUCT COMPLAINT [None]
  - SEDATION [None]
